FAERS Safety Report 8530852 (Version 9)
Quarter: 2013Q3

REPORT INFORMATION
  Report Type: Spontaneous
  Country: CH (occurrence: CH)
  Receive Date: 20120426
  Receipt Date: 20130812
  Transmission Date: 20140515
  Serious: Yes (Hospitalization, Other)
  Sender: FDA-Public Use
  Company Number: CH-BIOGENIDEC-2011BI039876

PATIENT
  Age: 36 Year
  Sex: Male
  Weight: 92 kg

DRUGS (4)
  1. TYSABRI [Suspect]
     Indication: MULTIPLE SCLEROSIS
     Route: 042
     Dates: start: 20080421, end: 20110525
  2. ISOTRETINOIN [Concomitant]
     Indication: ACNE CONGLOBATA
  3. CITALOPRAM [Concomitant]
  4. LIORESAL [Concomitant]

REACTIONS (4)
  - Progressive multifocal leukoencephalopathy [Unknown]
  - Immune reconstitution inflammatory syndrome [Unknown]
  - Social problem [Unknown]
  - Depression [Not Recovered/Not Resolved]
